FAERS Safety Report 8601146 (Version 4)
Quarter: 2017Q1

REPORT INFORMATION
  Report Type: Report from Study
  Country: US (occurrence: US)
  Receive Date: 20120606
  Receipt Date: 20170104
  Transmission Date: 20170429
  Serious: Yes (Death, Other)
  Sender: FDA-Public Use
  Company Number: US-ROCHE-1072037

PATIENT

DRUGS (5)
  1. TEMOZOLOMIDE. [Suspect]
     Active Substance: TEMOZOLOMIDE
     Dosage: AFTER RADIATION
     Route: 065
  2. IRINOTECAN [Suspect]
     Active Substance: IRINOTECAN
     Indication: GLIOBLASTOMA MULTIFORME
     Dosage: 125MG/M2 OR 340MG/M2 (IF ON EIAED)
     Route: 065
  3. BEVACIZUMAB [Suspect]
     Active Substance: BEVACIZUMAB
     Dosage: FOLLOWING THE COMPLETION OF RADIATION THERAPY.
     Route: 065
  4. BEVACIZUMAB [Suspect]
     Active Substance: BEVACIZUMAB
     Indication: GLIOBLASTOMA MULTIFORME
     Dosage: BEGINNING AT A MINIMUM OF 28 DAYS AFTER THE CRANIOTOMY
     Route: 065
  5. TEMOZOLOMIDE. [Suspect]
     Active Substance: TEMOZOLOMIDE
     Indication: GLIOBLASTOMA MULTIFORME
     Dosage: THROUGHOUT THE COURSE OF RADIATION THERAPY
     Route: 065

REACTIONS (14)
  - Sepsis [Fatal]
  - Pneumocystis jirovecii pneumonia [Fatal]
  - Pulmonary embolism [Unknown]
  - Pancytopenia [Unknown]
  - Acute myeloid leukaemia [Unknown]
  - Rectal abscess [Unknown]
  - Central nervous system haemorrhage [Unknown]
  - Myocardial infarction [Fatal]
  - Optic neuritis [Unknown]
  - Neutropenia [Unknown]
  - Intestinal perforation [Unknown]
  - Deep vein thrombosis [Unknown]
  - Wound dehiscence [Unknown]
  - Thrombocytopenia [Unknown]
